FAERS Safety Report 10217826 (Version 2)
Quarter: 2014Q3

REPORT INFORMATION
  Report Type: Report from Study
  Country: FR (occurrence: FR)
  Receive Date: 20140604
  Receipt Date: 20140714
  Transmission Date: 20150326
  Serious: Yes (Death, Other)
  Sender: FDA-Public Use
  Company Number: FR-BRISTOL-MYERS SQUIBB COMPANY-20823209

PATIENT
  Age: 70 Year
  Sex: Female
  Weight: 47 kg

DRUGS (8)
  1. RAMIPRIL. [Concomitant]
     Active Substance: RAMIPRIL
     Dosage: 5MG 1 TABLET
     Dates: start: 20140328
  2. PANTOPRAZOLE [Concomitant]
     Active Substance: PANTOPRAZOLE SODIUM
  3. ALDACTONE [Concomitant]
     Active Substance: SPIRONOLACTONE
     Dates: start: 20140328
  4. CRESTOR [Concomitant]
     Active Substance: ROSUVASTATIN CALCIUM
     Dates: start: 201211
  5. BARACLUDE [Suspect]
     Active Substance: ENTECAVIR
     Indication: HEPATITIS B
     Dates: start: 20110628
  6. BISOPROLOL [Concomitant]
     Active Substance: BISOPROLOL
     Dosage: 7.5 MG 1 TABLET
     Dates: start: 20140328
  7. DIFFU-K [Concomitant]
     Active Substance: POTASSIUM CHLORIDE
     Dates: start: 201211
  8. MINISINTROM [Concomitant]
     Active Substance: ACENOCOUMAROL
     Dates: start: 201211

REACTIONS (5)
  - Hepatocellular carcinoma [Unknown]
  - Pneumonia [Fatal]
  - Septic shock [Fatal]
  - Hepatic encephalopathy [Fatal]
  - Cardiogenic shock [Fatal]

NARRATIVE: CASE EVENT DATE: 20140507
